FAERS Safety Report 4323823-6 (Version None)
Quarter: 2004Q1

REPORT INFORMATION
  Report Type: 
  Country: None (occurrence: None)
  Receive Date: 20040323
  Receipt Date: 20040310
  Transmission Date: 20041129
  Serious: Yes (Hospitalization)
  Sender: FDA-Public Use
  Company Number: 2004-01086

PATIENT
  Age: 34 Year
  Sex: Male

DRUGS (5)
  1. CHLORPROMAZINE HYDROCHLORIDE (WATSON LABORATORIES) (CHLORPROMAZINE HYD [Suspect]
     Indication: SCHIZOPHRENIA
  2. DIPHENHYDRAMINE HCL [Suspect]
     Dosage: 25 MG, DAILY, ORAL
     Route: 048
  3. HALOPERIDOL (WATSON LABORATORIES) (HALOPERIDOL) TABLET [Suspect]
     Indication: SCHIZOPHRENIA
     Dosage: 15 MG, DAILY, ORAL
     Route: 048
  4. VALPROIC ACID [Suspect]
     Indication: SCHIZOPHRENIA
     Dosage: 1500 MG, DAILY, ORAL
     Route: 048
  5. FLUPHENAZINE [Suspect]
     Indication: SCHIZOPHRENIA

REACTIONS (2)
  - DRUG INTERACTION POTENTIATION [None]
  - PULMONARY EOSINOPHILIA [None]
